FAERS Safety Report 20957483 (Version 2)
Quarter: 2022Q2

REPORT INFORMATION
  Report Type: Spontaneous
  Country: US (occurrence: US)
  Receive Date: 20220614
  Receipt Date: 20220627
  Transmission Date: 20220721
  Serious: Yes (Death, Life-Threatening, Hospitalization, Other)
  Sender: FDA-Public Use
  Company Number: US-MLMSERVICE-20220602-3590912-1

PATIENT
  Age: 61 Year
  Sex: Female
  Weight: 47.2 kg

DRUGS (4)
  1. PREDNISONE [Suspect]
     Active Substance: PREDNISONE
     Indication: Immunosuppressant drug therapy
  2. ANTI-THYMOCYTE GLOBULIN (RABBIT) NOS [Suspect]
     Active Substance: LAPINE T-LYMPHOCYTE IMMUNE GLOBULIN
     Indication: Immunosuppressant drug therapy
     Dosage: UNK
  3. TACROLIMUS [Suspect]
     Active Substance: TACROLIMUS
     Indication: Immunosuppressant drug therapy
  4. MYCOPHENOLATE MOFETIL [Suspect]
     Active Substance: MYCOPHENOLATE MOFETIL
     Indication: Immunosuppressant drug therapy

REACTIONS (15)
  - Disseminated mycobacterium avium complex infection [Fatal]
  - Muscle atrophy [Fatal]
  - Acute respiratory failure [Fatal]
  - Renal transplant failure [Fatal]
  - Pneumonia [Fatal]
  - Gastric disorder [Fatal]
  - Pleural effusion [Fatal]
  - Malnutrition [Fatal]
  - Diarrhoea [Fatal]
  - Renal impairment [Fatal]
  - Fall [Fatal]
  - Asthenia [Fatal]
  - Respiratory distress [Fatal]
  - Oedema [Fatal]
  - Cytomegalovirus infection [Unknown]
